FAERS Safety Report 6916559-6 (Version None)
Quarter: 2010Q3

REPORT INFORMATION
  Report Type: 
  Country: None (occurrence: None)
  Receive Date: 20100810
  Receipt Date: 20100805
  Transmission Date: 20110219
  Serious: Yes (Other)
  Sender: FDA-Public Use
  Company Number: US-BRISTOL-MYERS SQUIBB COMPANY-15227416

PATIENT
  Age: 56 Year
  Sex: Female

DRUGS (3)
  1. PRAVACHOL [Suspect]
     Dosage: FILM COATED TABS
  2. LIPITOR [Suspect]
  3. TRICOR [Suspect]
     Route: 048

REACTIONS (1)
  - DRUG HYPERSENSITIVITY [None]
